FAERS Safety Report 6357586-X (Version None)
Quarter: 2009Q3

REPORT INFORMATION
  Report Type: 
  Country: None (occurrence: None)
  Receive Date: 20090916
  Receipt Date: 20090908
  Transmission Date: 20100115
  Serious: Yes (Other)
  Sender: FDA-Public Use
  Company Number: PHHY2009CA33454

PATIENT
  Sex: Female

DRUGS (1)
  1. SANDOSTATIN LAR [Suspect]
     Indication: PANCREATIC FISTULA
     Dosage: 30 MG, QMO
     Route: 030
     Dates: start: 20090630, end: 20090903

REACTIONS (2)
  - ASTHENIA [None]
  - PALLOR [None]
